FAERS Safety Report 24342220 (Version 1)
Quarter: 2024Q3

REPORT INFORMATION
  Report Type: Spontaneous
  Country: US (occurrence: US)
  Receive Date: 20240920
  Receipt Date: 20240920
  Transmission Date: 20241017
  Serious: No
  Sender: BAUSCH AND LOMB
  Company Number: US-BAUSCHBL-2024BNL033262

PATIENT
  Sex: Female

DRUGS (2)
  1. XIIDRA [Suspect]
     Active Substance: LIFITEGRAST
     Indication: Dry eye
     Dosage: PATIENT HAD BEEN USING THE LIFITEGRAST EITHER ONCE OR TWICE A DAY.
     Route: 047
     Dates: start: 2024
  2. XIIDRA [Suspect]
     Active Substance: LIFITEGRAST
     Indication: Macular degeneration

REACTIONS (5)
  - Ocular discomfort [Unknown]
  - Dry eye [Unknown]
  - Photophobia [Unknown]
  - Inappropriate schedule of product administration [Unknown]
  - Product dose omission in error [Unknown]

NARRATIVE: CASE EVENT DATE: 20240101
